FAERS Safety Report 13840947 (Version 1)
Quarter: 2017Q3

REPORT INFORMATION
  Report Type: Report from Study
  Country: US (occurrence: US)
  Receive Date: 20170807
  Receipt Date: 20170807
  Transmission Date: 20171127
  Serious: Yes (Disabling, Other)
  Sender: FDA-Public Use
  Company Number: US-PFIZER INC-2017331381

PATIENT
  Age: 38 Year
  Sex: Female
  Weight: 98 kg

DRUGS (5)
  1. ORENITRAM [Suspect]
     Active Substance: TREPROSTINIL
     Indication: PULMONARY ARTERIAL HYPERTENSION
     Dosage: 4 MG, 3X/DAY
     Route: 048
     Dates: start: 20160324
  2. ORENITRAM [Suspect]
     Active Substance: TREPROSTINIL
     Dosage: 4 MG, 3X/DAY
     Route: 048
     Dates: start: 20160324
  3. SILDENAFIL CITRATE. [Suspect]
     Active Substance: SILDENAFIL CITRATE
     Dosage: UNK
  4. LETAIRIS [Concomitant]
     Active Substance: AMBRISENTAN
     Dosage: UNK
  5. ORENITRAM [Suspect]
     Active Substance: TREPROSTINIL
     Dosage: 4 MG, 3X/DAY
     Route: 048
     Dates: start: 20160324

REACTIONS (2)
  - Tinnitus [Unknown]
  - Deafness [Unknown]

NARRATIVE: CASE EVENT DATE: 20170603
